FAERS Safety Report 17860282 (Version 2)
Quarter: 2020Q2

REPORT INFORMATION
  Report Type: Report from Study
  Country: None (occurrence: CA)
  Receive Date: 20200604
  Receipt Date: 20200630
  Transmission Date: 20200714
  Serious: Yes (Hospitalization)
  Sender: FDA-Public Use
  Company Number: CA-ABBVIE-20K-028-3430226-00

PATIENT
  Age: 50 Year
  Sex: Female

DRUGS (4)
  1. CYTOMEL [Suspect]
     Active Substance: LIOTHYRONINE SODIUM
     Route: 065
  2. SYNTHROID [Concomitant]
     Active Substance: LEVOTHYROXINE SODIUM
     Indication: PRODUCT USED FOR UNKNOWN INDICATION
  3. HUMIRA [Suspect]
     Active Substance: ADALIMUMAB
     Indication: CROHN^S DISEASE
     Route: 058
     Dates: start: 20200321
  4. CYTOMEL [Suspect]
     Active Substance: LIOTHYRONINE SODIUM
     Indication: PRODUCT USED FOR UNKNOWN INDICATION
     Route: 065

REACTIONS (11)
  - Myalgia [Not Recovered/Not Resolved]
  - Heart rate increased [Unknown]
  - Supraventricular tachycardia [Recovered/Resolved]
  - Crohn^s disease [Not Recovered/Not Resolved]
  - Headache [Not Recovered/Not Resolved]
  - Carotidynia [Recovered/Resolved]
  - Muscle strain [Not Recovered/Not Resolved]
  - Malaise [Not Recovered/Not Resolved]
  - Breast pain [Not Recovered/Not Resolved]
  - Adverse food reaction [Unknown]
  - Feeling hot [Not Recovered/Not Resolved]

NARRATIVE: CASE EVENT DATE: 2020
